FAERS Safety Report 8673337 (Version 2)
Quarter: 2012Q4

REPORT INFORMATION
  Report Type: 
  Country: JP (occurrence: JP)
  Receive Date: 20120719
  Receipt Date: 20121018
  Transmission Date: 20130627
  Serious: Yes (Life-Threatening, Other)
  Sender: FDA-Public Use
  Company Number: PHHY2012JP061468

PATIENT
  Age: 75 Year
  Sex: Female

DRUGS (16)
  1. VOLTAREN [Suspect]
     Indication: RHEUMATOID ARTHRITIS
  2. ORENCIA [Suspect]
     Indication: RHEUMATOID ARTHRITIS
     Dosage: 500 mg, UNK
     Route: 041
     Dates: start: 20110107
  3. ORENCIA [Suspect]
     Dosage: 500 mg, UNK
     Route: 041
     Dates: start: 20110203
  4. ORENCIA [Suspect]
     Dosage: 500 mg, UNK
     Route: 041
     Dates: start: 20110304
  5. ORENCIA [Suspect]
     Dosage: 500 mg, UNK
     Dates: start: 20110514
  6. METHOTREXATE [Suspect]
     Indication: RHEUMATOID ARTHRITIS
     Dosage: 10 mg, QW
     Dates: start: 200004, end: 20110405
  7. METHOTREXATE [Suspect]
     Dosage: 4 mg, QW
     Dates: start: 20110715, end: 20110808
  8. METHOTREXATE [Suspect]
     Dosage: 6 mg, QW
     Dates: start: 20110808, end: 20111126
  9. METHOTREXATE [Suspect]
     Dosage: 4 mg, QW
     Dates: start: 20111126, end: 20120208
  10. METHOTREXATE [Suspect]
     Dosage: 6 mg/ week
     Dates: start: 20120208, end: 20120509
  11. WARFARIN POTASSIUM [Concomitant]
     Indication: DEEP VEIN THROMBOSIS
  12. MUCOSTA [Concomitant]
  13. FOSAMAX [Concomitant]
  14. PREDONINE [Concomitant]
  15. RINDERON [Concomitant]
     Dates: start: 20111214
  16. BAKTAR [Concomitant]
     Indication: ANTIFUNGAL PROPHYLAXIS

REACTIONS (6)
  - Duodenal ulcer perforation [Recovered/Resolved]
  - Peritonitis [Unknown]
  - Interstitial lung disease [Unknown]
  - Post procedural complication [Unknown]
  - Post procedural infection [Recovering/Resolving]
  - Red blood cell count decreased [Unknown]
